FAERS Safety Report 6248869-2 (Version None)
Quarter: 2009Q2

REPORT INFORMATION
  Report Type: 
  Country: None (occurrence: None)
  Receive Date: 20090629
  Receipt Date: 20090616
  Transmission Date: 20091009
  Serious: Yes (Hospitalization)
  Sender: FDA-Public Use
  Company Number: PHHO2009FI07456

PATIENT
  Weight: 88 kg

DRUGS (3)
  1. RAD 666 RAD+TAB [Suspect]
     Indication: METASTATIC RENAL CELL CARCINOMA
     Dosage: 10 MG/DAY
     Route: 048
     Dates: start: 20090507, end: 20090615
  2. PARACETAMOL [Concomitant]
     Indication: FEMUR FRACTURE
     Dosage: 500 MG, UNK
     Route: 048
     Dates: start: 20080910
  3. FRAGMIN [Concomitant]
     Indication: EMBOLISM
     Dosage: 5000 IU, UNK
     Route: 058
     Dates: start: 20070815

REACTIONS (5)
  - DYSPNOEA [None]
  - JOINT SWELLING [None]
  - OXYGEN SATURATION DECREASED [None]
  - PYREXIA [None]
  - TACHYCARDIA [None]
